FAERS Safety Report 12700869 (Version 1)
Quarter: 2016Q3

REPORT INFORMATION
  Report Type: Spontaneous
  Country: US (occurrence: None)
  Receive Date: 20160830
  Receipt Date: 20160830
  Transmission Date: 20161109
  Serious: Yes (Death)
  Sender: FDA-Public Use
  Company Number: None

PATIENT
  Age: 78 Year
  Sex: Male

DRUGS (1)
  1. OCTREOTIDE 200MCG/ML FRESENIUS KABI [Suspect]
     Active Substance: OCTREOTIDE
     Indication: ACROMEGALY
     Route: 058
     Dates: start: 20140307, end: 20160730

REACTIONS (1)
  - Death [None]

NARRATIVE: CASE EVENT DATE: 20160730
